FAERS Safety Report 6176693 (Version 4)
Quarter: 2013Q2

REPORT INFORMATION
  Report Type: Spontaneous
  Country: DE (occurrence: DE)
  Receive Date: 20061130
  Receipt Date: 20130419
  Transmission Date: 20140414
  Serious: Yes (Other)
  Sender: FDA-Public Use
  Company Number: PHNU2002DE02846

PATIENT
  Sex: Female

DRUGS (11)
  1. BRISERIN-N [Suspect]
     Indication: HYPERTENSION
     Dosage: 1 DF, QD
     Route: 048
     Dates: start: 19921106, end: 20030729
  2. BRISERIN-N [Suspect]
     Dosage: 2 DF, QD
     Route: 048
  3. BRISERIN-N [Suspect]
     Dosage: 1 DF, QD
     Route: 048
  4. BRISERIN-N [Suspect]
     Dosage: UNK UKN, UNK
     Route: 048
     Dates: start: 200309
  5. BRISERIN-N [Suspect]
     Dosage: 0.5 MG, TID
  6. BRISERIN-N MITE [Suspect]
     Indication: HYPERTENSION
     Dosage: UNK UKN, UNK
     Route: 048
     Dates: start: 1992, end: 20030729
  7. BRISERIN-N MITE [Suspect]
     Dosage: 0.5 DF, PRN
     Route: 048
     Dates: start: 2000, end: 20030729
  8. BRISERIN-N MITE [Suspect]
     Dosage: 1 DF, DAILY
     Route: 048
  9. ZENTRAMIN N TABLET [Concomitant]
     Indication: MUSCLE SPASMS
     Dosage: UNK, PRN
     Route: 048
  10. SEDARISTON [Concomitant]
     Indication: DYSTONIA
     Dosage: UNK, PRN
     Route: 065
     Dates: start: 1982
  11. IBEROGAST [Concomitant]
     Indication: GASTRITIS
     Dosage: 10 DRP, DAY
     Route: 048
     Dates: start: 1999

REACTIONS (14)
  - Polyneuropathy [Not Recovered/Not Resolved]
  - Skin burning sensation [Unknown]
  - Hypersensitivity [Not Recovered/Not Resolved]
  - Hypoaesthesia [Unknown]
  - Hyperaesthesia [Unknown]
  - Blood parathyroid hormone increased [Unknown]
  - Blood pressure inadequately controlled [Not Recovered/Not Resolved]
  - Blood pressure increased [Unknown]
  - Blood pressure fluctuation [Unknown]
  - Dyspnoea [Recovered/Resolved]
  - Depressed mood [Unknown]
  - Apathy [Unknown]
  - Nasal congestion [Unknown]
  - Malaise [Unknown]
